FAERS Safety Report 19743823 (Version 4)
Quarter: 2022Q4

REPORT INFORMATION
  Report Type: Report from Study
  Country: US (occurrence: None)
  Receive Date: 20210825
  Receipt Date: 20221115
  Transmission Date: 20230112
  Serious: Yes (Hospitalization)
  Sender: FDA-Public Use
  Company Number: US-ROCHE-2892273

PATIENT
  Age: 33 Year
  Sex: Female
  Weight: 73.3 kg

DRUGS (7)
  1. ATEZOLIZUMAB [Suspect]
     Active Substance: ATEZOLIZUMAB
     Indication: Triple negative breast cancer
     Dosage: THE PATIENT^S LAST DOSE OF ATEZOLIZUMAB WAS ON 23-JUL-2021,
     Route: 041
     Dates: start: 20210723
  2. ATEZOLIZUMAB [Suspect]
     Active Substance: ATEZOLIZUMAB
     Dosage: THE PATIENT^S LAST DOSE OF ATEZOLIZUMAB WAS ON 23-JUL-2021,
     Route: 041
     Dates: start: 20210820
  3. PACLITAXEL [Suspect]
     Active Substance: PACLITAXEL
     Indication: Triple negative breast cancer
     Dosage: LAST DOSE OF NAB-PACLITAXEL WAS ON 30-JUL-2021,
     Route: 042
     Dates: start: 20210723
  4. PACLITAXEL [Suspect]
     Active Substance: PACLITAXEL
     Route: 042
     Dates: start: 20210820
  5. EGANELISIB [Suspect]
     Active Substance: EGANELISIB
     Indication: Triple negative breast cancer
     Dosage: LAST DOSE OF IPI-549 WAS ON 03-AUG-2021,
     Route: 048
     Dates: start: 20210723
  6. EGANELISIB [Suspect]
     Active Substance: EGANELISIB
     Dosage: LAST DOSE OF IPI-549 WAS ON 03-AUG-2021,
     Route: 048
     Dates: start: 20210827
  7. TRIAMCINOLONE [Concomitant]
     Active Substance: TRIAMCINOLONE
     Indication: Rash

REACTIONS (1)
  - Febrile neutropenia [Recovered/Resolved]

NARRATIVE: CASE EVENT DATE: 20210803
